FAERS Safety Report 8092477-8 (Version None)
Quarter: 2012Q1

REPORT INFORMATION
  Report Type: 
  Country: None (occurrence: None)
  Receive Date: 20120128
  Receipt Date: 20110728
  Transmission Date: 20120608
  Serious: No
  Sender: FDA-Public Use
  Company Number: US-ABBOTT-11P-163-0842295-00

PATIENT
  Sex: Female
  Weight: 56.75 kg

DRUGS (4)
  1. ATTENOLOL [Concomitant]
     Indication: HYPERTENSION
  2. NEXIUM [Concomitant]
     Indication: GASTROOESOPHAGEAL REFLUX DISEASE
  3. HUMIRA [Suspect]
     Indication: PSORIATIC ARTHROPATHY
     Route: 058
     Dates: start: 20110709
  4. XANAX [Concomitant]
     Indication: ANXIETY

REACTIONS (3)
  - NAUSEA [None]
  - PAIN [None]
  - VOMITING [None]
